FAERS Safety Report 4932162-1 (Version None)
Quarter: 2006Q1

REPORT INFORMATION
  Report Type: 
  Country: None (occurrence: None)
  Receive Date: 20060303
  Receipt Date: 20060222
  Transmission Date: 20060701
  Serious: Yes (Life-Threatening)
  Sender: FDA-Public Use
  Company Number: CN-SANOFI-SYNTHELABO-A01200601321

PATIENT
  Age: 78 Year
  Sex: Male

DRUGS (5)
  1. PLAVIX [Suspect]
     Indication: DRUG USE FOR UNKNOWN INDICATION
     Route: 048
     Dates: start: 20060218, end: 20060218
  2. PLAVIX [Suspect]
     Route: 048
     Dates: start: 20060219, end: 20060220
  3. CIMETIDINE [Suspect]
     Indication: GASTRIC DISORDER
     Dosage: UNK
     Route: 042
     Dates: start: 20060220, end: 20060220
  4. CIMETIDINE [Suspect]
     Dosage: UNK
     Route: 042
     Dates: start: 20060220, end: 20060220
  5. ASPIRIN [Concomitant]
     Indication: ANTICOAGULATION DRUG LEVEL
     Route: 048

REACTIONS (3)
  - ASTHMA [None]
  - DYSPNOEA [None]
  - WHEEZING [None]
